FAERS Safety Report 13548676 (Version 1)
Quarter: 2017Q2

REPORT INFORMATION
  Report Type: Spontaneous
  Country: US (occurrence: US)
  Receive Date: 20170516
  Receipt Date: 20170516
  Transmission Date: 20170830
  Serious: No
  Sender: FDA-Public Use
  Company Number: US-JNJFOC-20170430221

PATIENT
  Age: 28 Year
  Sex: Male
  Weight: 77.11 kg

DRUGS (3)
  1. MENS ROGAINE EXTRA STRENGTH [Suspect]
     Active Substance: MINOXIDIL
     Route: 061
  2. VIVISCAL [Concomitant]
     Indication: ALOPECIA
     Route: 065
  3. MENS ROGAINE EXTRA STRENGTH [Suspect]
     Active Substance: MINOXIDIL
     Indication: ALOPECIA
     Dosage: DOSAGE AS DIRECTED
     Route: 061
     Dates: start: 201603

REACTIONS (1)
  - Loss of libido [Not Recovered/Not Resolved]
